FAERS Safety Report 4818554-X (Version None)
Quarter: 2005Q4

REPORT INFORMATION
  Report Type: 
  Country: None (occurrence: None)
  Receive Date: 20051031
  Receipt Date: 20051020
  Transmission Date: 20060501
  Serious: Yes (Death, Life-Threatening)
  Sender: FDA-Public Use
  Company Number: 2005EU001452

PATIENT
  Age: 32 Year
  Sex: Female
  Weight: 64 kg

DRUGS (10)
  1. PROGRAF [Suspect]
     Indication: RENAL TRANSPLANT
     Dosage: 0.15 MG/KG,UID/QD,ORAL ; 0.10 MG/KG, UID/QD, ORAL
     Route: 048
     Dates: start: 20040316, end: 20040318
  2. PROGRAF [Suspect]
     Indication: RENAL TRANSPLANT
     Dosage: 0.15 MG/KG,UID/QD,ORAL ; 0.10 MG/KG, UID/QD, ORAL
     Route: 048
     Dates: start: 20040319, end: 20040321
  3. FUROSEMIDE [Suspect]
     Dosage: 2.00 G, UID/QD,ORAL
     Route: 048
     Dates: start: 20040316
  4. PREDNISONE [Suspect]
     Dosage: SEE IMAGE
     Route: 042
     Dates: start: 20040317, end: 20040317
  5. PREDNISONE [Suspect]
     Dosage: SEE IMAGE
     Route: 042
     Dates: start: 20040316, end: 20050316
  6. PREDNISONE [Suspect]
     Dosage: SEE IMAGE
     Route: 042
     Dates: start: 20040318
  7. SIMULECT [Suspect]
     Dosage: SEE IMAGE
     Route: 042
     Dates: start: 20040316, end: 20040316
  8. SIMULECT [Suspect]
     Dosage: SEE IMAGE
     Route: 042
     Dates: start: 20040320, end: 20040320
  9. VANCOMYCIN [Suspect]
     Dosage: 500.00 MG, TOTAL DOSE, IV NOS
     Route: 042
     Dates: start: 20040316, end: 20040316
  10. CELLCEPT [Concomitant]

REACTIONS (8)
  - BLINDNESS [None]
  - BRAIN SCAN ABNORMAL [None]
  - CONVULSION [None]
  - DEPRESSED LEVEL OF CONSCIOUSNESS [None]
  - ELECTROENCEPHALOGRAM ABNORMAL [None]
  - HEMIPLEGIA [None]
  - ISCHAEMIC STROKE [None]
  - LEUKOENCEPHALOPATHY [None]
